FAERS Safety Report 6825258-0 (Version None)
Quarter: 2010Q3

REPORT INFORMATION
  Report Type: 
  Country: None (occurrence: None)
  Receive Date: 20100708
  Receipt Date: 20061213
  Transmission Date: 20110219
  Serious: Yes (Other)
  Sender: FDA-Public Use
  Company Number: US-PFIZER INC-2006153138

PATIENT
  Sex: Female
  Weight: 81.65 kg

DRUGS (16)
  1. CHANTIX [Suspect]
     Indication: SMOKING CESSATION THERAPY
     Dates: start: 20061114, end: 20061211
  2. NEXIUM [Concomitant]
  3. CLONAZEPAM [Concomitant]
  4. HYZAAR [Concomitant]
  5. ZYRTEC [Concomitant]
  6. CYMBALTA [Concomitant]
  7. LIPITOR [Concomitant]
  8. CYCLOBENZAPRINE [Concomitant]
  9. NASONEX [Concomitant]
     Route: 045
  10. CENTRUM [Concomitant]
  11. EXTRA STRENGTH TYLENOL [Concomitant]
  12. ACETYLSALICYLIC ACID [Concomitant]
  13. ALBUTEROL [Concomitant]
  14. SPIRIVA [Concomitant]
     Dates: start: 20061102
  15. ESTROVEN [Concomitant]
     Dates: start: 20061114
  16. CALCIUM WITH VITAMIN D [Concomitant]
     Dates: start: 20061114

REACTIONS (11)
  - ABDOMINAL DISCOMFORT [None]
  - APATHY [None]
  - BLOOD PRESSURE INCREASED [None]
  - EMOTIONAL DISORDER [None]
  - FLATULENCE [None]
  - HEADACHE [None]
  - HYPERSOMNIA [None]
  - INSOMNIA [None]
  - NAUSEA [None]
  - VISION BLURRED [None]
  - VOMITING [None]
